FAERS Safety Report 7380627-8 (Version None)
Quarter: 2011Q1

REPORT INFORMATION
  Report Type: 
  Country: None (occurrence: None)
  Receive Date: 20110325
  Receipt Date: 20110325
  Transmission Date: 20110831
  Serious: No
  Sender: FDA-Public Use
  Company Number: None

PATIENT
  Age: 58 Year
  Sex: Female
  Weight: 84.868 kg

DRUGS (2)
  1. FLEBOGAMMA [Suspect]
     Indication: HYPOGAMMAGLOBULINAEMIA
     Dosage: 0.5 ML/KG/HR X 15 MINS  TITRATION IV DRIP
     Route: 041
     Dates: start: 20110322, end: 20110322
  2. FLEBOGAMMA [Suspect]
     Dosage: 1 ML/KG/HR X 30 MINS, 2ML/KG/ HR X 30 MINS IV DRIP
     Route: 041

REACTIONS (2)
  - INFUSION RELATED REACTION [None]
  - MUSCULOSKELETAL PAIN [None]
